FAERS Safety Report 18883806 (Version 4)
Quarter: 2021Q1

REPORT INFORMATION
  Report Type: Spontaneous
  Country: US (occurrence: US)
  Receive Date: 20210212
  Receipt Date: 20210318
  Transmission Date: 20210420
  Serious: Yes (Hospitalization, Other)
  Sender: FDA-Public Use
  Company Number: US-GLOBAL BLOOD THERAPEUTICS INC-US-GBT-21-00306

PATIENT
  Age: 62 Year
  Sex: Male

DRUGS (4)
  1. OXBRYTA [Suspect]
     Active Substance: VOXELOTOR
     Indication: SICKLE CELL DISEASE
     Route: 048
     Dates: start: 20201223, end: 20210125
  2. CODEIN [Concomitant]
     Active Substance: CODEINE
     Indication: PRODUCT USED FOR UNKNOWN INDICATION
     Dosage: NOT REPORTED
  3. TYLENOL [Concomitant]
     Active Substance: ACETAMINOPHEN
     Indication: PRODUCT USED FOR UNKNOWN INDICATION
     Dosage: NOT PROVIDED
  4. FOLIC ACID. [Concomitant]
     Active Substance: FOLIC ACID
     Indication: PRODUCT USED FOR UNKNOWN INDICATION
     Route: 048

REACTIONS (18)
  - Acute kidney injury [Unknown]
  - Sickle cell anaemia with crisis [Recovered/Resolved]
  - Near death experience [Recovered/Resolved]
  - Abdominal discomfort [Recovered/Resolved]
  - Anaemia [Unknown]
  - Myocardial infarction [Unknown]
  - Endodontic procedure [Unknown]
  - Product use complaint [Unknown]
  - Constipation [Not Recovered/Not Resolved]
  - Therapy cessation [Unknown]
  - Thrombosis [Unknown]
  - Chronic kidney disease [Unknown]
  - Joint dislocation [Not Recovered/Not Resolved]
  - Anger [Unknown]
  - Rash [Unknown]
  - Erectile dysfunction [Not Recovered/Not Resolved]
  - Hypoaesthesia [Not Recovered/Not Resolved]
  - Nausea [Unknown]

NARRATIVE: CASE EVENT DATE: 2021
